FAERS Safety Report 10862430 (Version 1)
Quarter: 2015Q1

REPORT INFORMATION
  Report Type: Spontaneous
  Country: JP (occurrence: None)
  Receive Date: 20150219
  Receipt Date: 20150219
  Transmission Date: 20150721
  Serious: Yes (Other)
  Sender: FDA-Public Use
  Company Number: COR_00250_2015

PATIENT

DRUGS (3)
  1. CARBOPLATIN (CARBOPLATIN) [Suspect]
     Active Substance: CARBOPLATIN
     Indication: NON-SMALL CELL LUNG CANCER
     Dosage: AUC 4 WEEKS ADMINISTERED ON DAY 1, EVERY 4 WEEKS
  2. PACLITAXEL (PACLITAXEL) [Suspect]
     Active Substance: PACLITAXEL
     Indication: NON-SMALL CELL LUNG CANCER
     Dosage: 4 WEEKS DAYS 1, 8 AND 15 , EVERY 4 WEEKS
  3. BEVACIZUMAB (BEVACIZUMAB) [Suspect]
     Active Substance: BEVACIZUMAB
     Indication: NON-SMALL CELL LUNG CANCER
     Dosage: 4 WEEKS DAY 1, EVERY 4 WEEKS

REACTIONS (3)
  - Condition aggravated [None]
  - Interstitial lung disease [None]
  - Non-small cell lung cancer [None]
